FAERS Safety Report 11203202 (Version 1)
Quarter: 2015Q2

REPORT INFORMATION
  Report Type: Spontaneous
  Country: US (occurrence: US)
  Receive Date: 20150619
  Receipt Date: 20150619
  Transmission Date: 20150821
  Serious: No
  Sender: FDA-Public Use
  Company Number: US-PFIZER INC-2015203779

PATIENT
  Age: 31 Year
  Sex: Female
  Weight: 97.96 kg

DRUGS (6)
  1. CELEBREX [Suspect]
     Active Substance: CELECOXIB
     Dosage: 200 MG, 2X/DAY
     Dates: end: 201412
  2. CELEBREX [Suspect]
     Active Substance: CELECOXIB
     Indication: MAMMOPLASTY
     Dosage: 200 MG, 1X/DAY
     Dates: start: 201407
  3. NAPROXEN SODIUM. [Suspect]
     Active Substance: NAPROXEN SODIUM
     Dosage: UNK
  4. ALEVE [Suspect]
     Active Substance: NAPROXEN SODIUM
     Indication: BACK PAIN
  5. IBUPROFEN. [Suspect]
     Active Substance: IBUPROFEN
     Dosage: UNK
  6. ALEVE [Suspect]
     Active Substance: NAPROXEN SODIUM
     Indication: ARTHRITIS
     Dosage: UNK, AS NEEDED
     Dates: start: 20130214

REACTIONS (3)
  - Muscle spasms [Unknown]
  - Product use issue [Unknown]
  - Contraindicated drug administered [Unknown]
